FAERS Safety Report 8138248-5 (Version None)
Quarter: 2012Q1

REPORT INFORMATION
  Report Type: 
  Country: None (occurrence: None)
  Receive Date: 20120215
  Receipt Date: 20120209
  Transmission Date: 20120608
  Serious: Yes (Hospitalization)
  Sender: FDA-Public Use
  Company Number: IL-ABBOTT-12P-082-0903343-00

PATIENT
  Sex: Female
  Weight: 86 kg

DRUGS (5)
  1. PLAQUENIL [Concomitant]
     Indication: RHEUMATOID ARTHRITIS
     Route: 048
  2. HUMIRA [Suspect]
     Indication: RHEUMATOID ARTHRITIS
     Route: 058
     Dates: start: 20120122, end: 20120209
  3. PLAQUENIL [Concomitant]
     Route: 048
  4. PREDNISONE TAB [Concomitant]
     Route: 048
  5. PREDNISONE TAB [Concomitant]
     Indication: RHEUMATOID ARTHRITIS
     Route: 048

REACTIONS (6)
  - MOBILITY DECREASED [None]
  - ARTHRALGIA [None]
  - ERYTHEMA [None]
  - SKIN DISCOLOURATION [None]
  - JOINT SWELLING [None]
  - C-REACTIVE PROTEIN ABNORMAL [None]
